FAERS Safety Report 19072706 (Version 1)
Quarter: 2021Q1

REPORT INFORMATION
  Report Type: Spontaneous
  Country: US (occurrence: US)
  Receive Date: 20210330
  Receipt Date: 20210330
  Transmission Date: 20210420
  Serious: No
  Sender: FDA-Public Use
  Company Number: US-AMGEN-USASP2021044893

PATIENT
  Age: 74 Year
  Sex: Female

DRUGS (1)
  1. PROLIA [Suspect]
     Active Substance: DENOSUMAB
     Indication: BONE DENSITY DECREASED
     Dosage: UNK
     Route: 065

REACTIONS (12)
  - Back pain [Unknown]
  - Tooth loss [Unknown]
  - Parathyroid disorder [Unknown]
  - Urinary tract infection [Unknown]
  - Illness [Unknown]
  - Pain in extremity [Unknown]
  - Sinus disorder [Unknown]
  - COVID-19 [Unknown]
  - Abdominal discomfort [Unknown]
  - Off label use [Unknown]
  - Blood immunoglobulin G decreased [Unknown]
  - Bronchitis [Unknown]

NARRATIVE: CASE EVENT DATE: 2020
